FAERS Safety Report 9299186 (Version 1)
Quarter: 2013Q2

REPORT INFORMATION
  Report Type: Spontaneous
  Country: IT (occurrence: IT)
  Receive Date: 20130520
  Receipt Date: 20130520
  Transmission Date: 20140414
  Serious: Yes (Other)
  Sender: FDA-Public Use
  Company Number: IT-BAXTER-2013BAX017980

PATIENT
  Age: 61 Year
  Sex: Female

DRUGS (1)
  1. KIOVIG 100 MG/ML SOLUTION FOR INFUSION [Suspect]
     Indication: PARAESTHESIA
     Route: 042

REACTIONS (1)
  - Drug ineffective [Not Recovered/Not Resolved]
